FAERS Safety Report 5491226-7 (Version None)
Quarter: 2007Q4

REPORT INFORMATION
  Report Type: 
  Country: None (occurrence: None)
  Receive Date: 20071017
  Receipt Date: 20071004
  Transmission Date: 20080405
  Serious: Yes (Hospitalization, Other)
  Sender: FDA-Public Use
  Company Number: US-JNJFOC-20070904482

PATIENT
  Age: 18 Year
  Sex: Female

DRUGS (3)
  1. DECITABINE (DECITABINE) LYOPHILIZED POWDER [Suspect]
     Indication: ACUTE MYELOID LEUKAEMIA
     Dosage: 20 MG/M2, IN 1 DAY, INTRAVENOUS; 20 MG/M2, IN 1 DAY, INTRAVENOUS
     Route: 042
     Dates: start: 20070721, end: 20070725
  2. DECITABINE (DECITABINE) LYOPHILIZED POWDER [Suspect]
     Indication: ACUTE MYELOID LEUKAEMIA
     Dosage: 20 MG/M2, IN 1 DAY, INTRAVENOUS; 20 MG/M2, IN 1 DAY, INTRAVENOUS
     Route: 042
     Dates: start: 20070820, end: 20070824
  3. VORINOSTAT (ANTINEOPLASTIC AGENTS) CAPSULES [Suspect]
     Indication: ACUTE MYELOID LEUKAEMIA
     Dosage: 400 MG, IN 1 DAY, ORAL
     Route: 048
     Dates: start: 20070726, end: 20070801

REACTIONS (11)
  - CAECITIS [None]
  - CELLULITIS [None]
  - CHEILITIS [None]
  - ELECTROCARDIOGRAM T WAVE ABNORMAL [None]
  - FEBRILE NEUTROPENIA [None]
  - LIP PAIN [None]
  - LIP SWELLING [None]
  - MOUTH INJURY [None]
  - ORAL INTAKE REDUCED [None]
  - SINUS TACHYCARDIA [None]
  - WEIGHT DECREASED [None]
